FAERS Safety Report 21175673 (Version 1)
Quarter: 2022Q3

REPORT INFORMATION
  Report Type: Report from Study
  Country: US (occurrence: US)
  Receive Date: 20220805
  Receipt Date: 20220805
  Transmission Date: 20221026
  Serious: Yes (Hospitalization)
  Sender: FDA-Public Use
  Company Number: US-JNJFOC-20220803711

PATIENT
  Sex: Female
  Weight: 30 kg

DRUGS (2)
  1. INFLIXIMAB [Suspect]
     Active Substance: INFLIXIMAB
     Indication: Inflammatory bowel disease
     Route: 041
     Dates: start: 20140113, end: 20140707
  2. ENTYVIO [Concomitant]
     Active Substance: VEDOLIZUMAB
     Dosage: CONTINUED (LAST DATE OF ADMINISTRATION PRIOR TO THE EVENT ON 05-FEB-2016)
     Dates: start: 20141223

REACTIONS (1)
  - Influenza [Recovered/Resolved]

NARRATIVE: CASE EVENT DATE: 20160402
